FAERS Safety Report 16833782 (Version 1)
Quarter: 2019Q3

REPORT INFORMATION
  Report Type: Spontaneous
  Country: US (occurrence: US)
  Receive Date: 20190920
  Receipt Date: 20190920
  Transmission Date: 20191005
  Serious: Yes (Disabling, Other)
  Sender: FDA-Public Use
  Company Number: US-JNJFOC-20190916329

PATIENT
  Age: 55 Year
  Sex: Female

DRUGS (3)
  1. REMICADE [Suspect]
     Active Substance: INFLIXIMAB
     Indication: PSORIATIC ARTHROPATHY
     Route: 042
     Dates: start: 2010, end: 20190725
  2. METHOTREXATE. [Concomitant]
     Active Substance: METHOTREXATE
  3. OTEZLA [Concomitant]
     Active Substance: APREMILAST

REACTIONS (5)
  - Haemolytic anaemia [Unknown]
  - Psoriatic arthropathy [Unknown]
  - Double stranded DNA antibody [Unknown]
  - Antinuclear antibody positive [Unknown]
  - Platelet count decreased [Unknown]

NARRATIVE: CASE EVENT DATE: 2017
